FAERS Safety Report 25594127 (Version 2)
Quarter: 2025Q3

REPORT INFORMATION
  Report Type: Report from Study
  Country: US (occurrence: US)
  Receive Date: 20250723
  Receipt Date: 20250918
  Transmission Date: 20251020
  Serious: No
  Sender: SUNOVION
  Company Number: US-SUMITOMO PHARMA SWITZERLAND GMBH-2025SPA008708

PATIENT
  Age: 75 Year
  Sex: Male

DRUGS (6)
  1. ORGOVYX [Suspect]
     Active Substance: RELUGOLIX
     Indication: Prostate cancer
     Route: 048
     Dates: start: 20250312, end: 20250312
  2. ORGOVYX [Suspect]
     Active Substance: RELUGOLIX
     Route: 048
  3. OXAZEPAM [Concomitant]
     Active Substance: OXAZEPAM
  4. ELIQUIS [Concomitant]
     Active Substance: APIXABAN
  5. DIGOXIN [Concomitant]
     Active Substance: DIGOXIN
  6. COREG [Concomitant]
     Active Substance: CARVEDILOL

REACTIONS (2)
  - Abdominal discomfort [Recovered/Resolved]
  - Fatigue [Not Recovered/Not Resolved]

NARRATIVE: CASE EVENT DATE: 20250318
